FAERS Safety Report 16761196 (Version 1)
Quarter: 2019Q3

REPORT INFORMATION
  Report Type: Spontaneous
  Country: US (occurrence: US)
  Receive Date: 20190830
  Receipt Date: 20190830
  Transmission Date: 20191005
  Serious: No
  Sender: FDA-Public Use
  Company Number: US-ANIPHARMA-2019-US-006398

PATIENT
  Age: 60 Year
  Sex: Female
  Weight: 81.65 kg

DRUGS (3)
  1. DOXYLAMINE SUCCINATE. [Concomitant]
     Active Substance: DOXYLAMINE SUCCINATE
     Dosage: 25 MILLIGRAMS AT NIGHT
     Route: 048
  2. ARIMIDEX [Suspect]
     Active Substance: ANASTROZOLE
     Indication: BREAST CANCER
     Dosage: 1 MILLIGRAM DAILY
     Route: 048
     Dates: start: 201705
  3. TAMOXIFEN [Suspect]
     Active Substance: TAMOXIFEN
     Dosage: 20 MILLIGRAMS DAILY
     Route: 048
     Dates: start: 201709

REACTIONS (4)
  - Arthralgia [Recovered/Resolved]
  - Myalgia [Recovered/Resolved]
  - Trigger finger [Not Recovered/Not Resolved]
  - Pain [Recovered/Resolved]
